FAERS Safety Report 7991468-2 (Version None)
Quarter: 2011Q4

REPORT INFORMATION
  Report Type: 
  Country: None (occurrence: None)
  Receive Date: 20111219
  Receipt Date: 20111212
  Transmission Date: 20120403
  Serious: Yes (Death, Hospitalization)
  Sender: FDA-Public Use
  Company Number: US-CELGENEUS-163-C5013-11053380

PATIENT
  Sex: Male
  Weight: 49.9 kg

DRUGS (69)
  1. DOCETAXEL [Suspect]
     Dosage: 115 MILLIGRAM
     Route: 065
     Dates: start: 20110517, end: 20110517
  2. DILTIAZEM [Concomitant]
     Dosage: 15 MILLIGRAM
     Route: 041
     Dates: start: 20110601, end: 20110601
  3. ONDANSETRON [Concomitant]
     Indication: NAUSEA
     Dosage: 8 MILLIGRAM
     Route: 048
     Dates: start: 20110426, end: 20110607
  4. METOPROLOL TARTRATE [Concomitant]
     Dosage: 5 MILLIGRAM
     Route: 041
     Dates: start: 20110607, end: 20110608
  5. POTASSIUM CHLORIDE [Concomitant]
     Dosage: 10 MILLIEQUIVALENTS
     Route: 041
     Dates: start: 20110526, end: 20110527
  6. BISACODYL [Concomitant]
     Dosage: 10 MILLIGRAM
     Route: 054
     Dates: start: 20110605, end: 20110605
  7. MAGNESIUM SULFATE [Concomitant]
     Dosage: 2 GRAM
     Dates: start: 20110606, end: 20110606
  8. SIMETHICONE [Concomitant]
     Dosage: 80 MILLIGRAM
     Route: 048
     Dates: start: 20110604, end: 20110604
  9. SODIUM POTASSIUM PHOSPHATE [Concomitant]
     Dosage: 2 PACKETS
     Route: 048
     Dates: start: 20110527, end: 20110527
  10. MORPHINE SULFATE [Concomitant]
     Indication: PAIN
     Dosage: 5 MILLIGRAM
     Route: 048
     Dates: start: 20110605, end: 20110608
  11. PREDNISONE TAB [Suspect]
     Indication: PROSTATE CANCER
     Dosage: 5 MILLIGRAM
     Route: 048
     Dates: start: 20110426
  12. DOCETAXEL [Suspect]
     Indication: PROSTATE CANCER
     Dosage: 115 MILLIGRAM
     Route: 065
     Dates: start: 20110426
  13. DILTIAZEM [Concomitant]
     Dosage: 30MG-45MG-60MG
     Route: 048
     Dates: start: 20110529, end: 20110609
  14. NEURONTIN [Concomitant]
     Dosage: 300 MILLIGRAM
     Route: 048
  15. PROCHLORPERAZINE [Concomitant]
     Dosage: 10 MILLIGRAM
     Route: 048
     Dates: start: 20110426
  16. SODIUM PHOSPHATE [Concomitant]
     Dosage: 15 MILLIMOLE
     Route: 041
     Dates: start: 20110602, end: 20110602
  17. LENALIDOMIDE [Suspect]
     Indication: PROSTATE CANCER
     Dosage: 25 MILLIGRAM
     Route: 048
     Dates: start: 20110426
  18. ASPIRIN [Concomitant]
     Indication: THROMBOSIS PROPHYLAXIS
     Dosage: 81 MILLIGRAM
     Route: 048
     Dates: start: 20110426
  19. DILTIAZEM [Concomitant]
     Indication: BLOOD PRESSURE
     Dosage: 30 MILLIGRAM
     Route: 048
     Dates: start: 20110525, end: 20110601
  20. FUROSEMIDE [Concomitant]
     Dosage: 20 MILLIGRAM
     Route: 048
     Dates: start: 20110510
  21. MORPHINE SULFATE [Concomitant]
     Dosage: 1 MILLIGRAM
     Route: 041
  22. NEXIUM [Concomitant]
     Dosage: 40 MILLIGRAM
     Dates: start: 20110607, end: 20110610
  23. METHYLPREDNISOLONE SODIUM SUCCINATE [Concomitant]
     Dosage: 4 MILLIGRAM
     Dates: start: 20110607, end: 20110608
  24. POTASSIUM CHLORIDE [Concomitant]
     Dosage: 20 MILLIEQUIVALENTS
     Route: 041
     Dates: start: 20110526, end: 20110526
  25. DEXAMETHASONE [Concomitant]
     Dosage: 8 MILLIGRAM
     Route: 048
     Dates: start: 20110426
  26. DILTIAZEM [Concomitant]
     Dosage: 10 MILLIGRAM
     Route: 041
     Dates: start: 20110607, end: 20110607
  27. FUROSEMIDE [Concomitant]
     Dosage: 20MG-40MG
     Route: 041
     Dates: start: 20110529, end: 20110529
  28. ONDANSETRON [Concomitant]
     Indication: VOMITING
     Dosage: 4 MILLIGRAM
     Route: 041
     Dates: start: 20110607, end: 20110611
  29. DOCUSATE SODIUM [Concomitant]
     Dosage: 100 MILLIGRAM
     Route: 048
     Dates: start: 20110605, end: 20110611
  30. ACETAMINOPHEN [Concomitant]
     Indication: PAIN
     Dosage: 650 MILLIGRAM
     Route: 048
     Dates: start: 20110601, end: 20110611
  31. MAGNESIUM SULFATE [Concomitant]
     Dosage: 4 GRAM
     Dates: start: 20110603, end: 20110603
  32. SODIUM POTASSIUM PHOSPHATE [Concomitant]
     Dosage: 1 TABLET
     Route: 048
     Dates: start: 20110528, end: 20110528
  33. LENALIDOMIDE [Suspect]
     Dosage: 20 MILLIGRAM
     Route: 048
     Dates: start: 20110517, end: 20110523
  34. DICLOXACILLIN [Concomitant]
     Dosage: 500 MILLIGRAM
     Route: 048
     Dates: start: 20110426
  35. DILTIAZEM [Concomitant]
     Dosage: 10 MILLIGRAM
     Route: 041
     Dates: start: 20110525, end: 20110525
  36. SENNA [Concomitant]
     Dosage: 2 TABLET
     Route: 048
     Dates: start: 20110605, end: 20110611
  37. VALIUM [Concomitant]
     Dosage: 5 MILLIGRAM
     Route: 048
  38. PIPERACILLIN AND TAZOBACTAM [Concomitant]
     Dosage: 4.5 GRAM
     Route: 041
     Dates: start: 20110525, end: 20110611
  39. METOPROLOL TARTRATE [Concomitant]
     Dosage: 25 MILLIGRAM
     Route: 048
     Dates: start: 20110609, end: 20110610
  40. METOPROLOL TARTRATE [Concomitant]
     Dosage: 37.5 MILLIGRAM
     Route: 048
     Dates: start: 20110610, end: 20110611
  41. MORPHINE SULFATE [Concomitant]
     Dosage: 1 MILLIGRAM
     Route: 041
     Dates: start: 20110604, end: 20110611
  42. POLYETHYLENE GLYCOL [Concomitant]
     Indication: CONSTIPATION
     Dosage: 1 PACKET
     Route: 048
     Dates: start: 20110527, end: 20110610
  43. FAMOTIDINE [Concomitant]
     Dosage: 10 MILLIGRAM
     Route: 040
     Dates: start: 20110607, end: 20110608
  44. DILTIAZEM [Concomitant]
     Dosage: 10 MILLIGRAM
     Route: 041
     Dates: start: 20110530, end: 20110530
  45. METHADONE HCL [Concomitant]
     Dosage: 10 MILLIGRAM
     Route: 048
     Dates: start: 20110525, end: 20110530
  46. MORPHINE SULFATE [Concomitant]
     Indication: PAIN
     Dosage: .5 MILLIGRAM
     Route: 041
     Dates: start: 20110602, end: 20110604
  47. MORPHINE SULFATE [Concomitant]
     Dosage: 7.5 MILLIGRAM
     Route: 048
     Dates: start: 20110608, end: 20110611
  48. LEVOTHYROXINE SODIUM [Concomitant]
     Dosage: 50 MICROGRAM
     Route: 048
     Dates: start: 20110527, end: 20110607
  49. LEVOTHYROXINE SODIUM [Concomitant]
     Dosage: 25 MICROGRAM
     Route: 041
     Dates: start: 20110608, end: 20110608
  50. GABAPENTIN [Concomitant]
     Dosage: 300 MILLIGRAM
     Route: 048
     Dates: start: 20110525, end: 20110530
  51. SODIUM POTASSIUM PHOSPHATE [Concomitant]
     Dosage: 1 TABLET
     Route: 048
     Dates: start: 20110603, end: 20110603
  52. DILTIAZEM [Concomitant]
     Dosage: 120 MILLIGRAM
     Route: 048
     Dates: start: 20110527, end: 20110529
  53. MINERAL OIL [Concomitant]
     Route: 048
  54. DOCUSATE SODIUM [Concomitant]
     Dosage: 100 MILLIGRAM
     Route: 048
     Dates: start: 20110527, end: 20110529
  55. NEXIUM [Concomitant]
     Dosage: 40 MILLIGRAM
     Route: 048
     Dates: start: 20110610, end: 20110611
  56. LEVOTHYROXINE SODIUM [Concomitant]
     Dosage: 25 MICROGRAM
     Route: 041
     Dates: start: 20110525, end: 20110526
  57. LEVOTHYROXINE SODIUM [Concomitant]
     Dosage: 50 MICROGRAM
     Route: 048
     Dates: start: 20110609, end: 20110611
  58. XENADERM [Concomitant]
     Dosage: 1 APPLICATION
     Route: 061
     Dates: start: 20110609, end: 20110611
  59. PREDNISONE TAB [Suspect]
     Dosage: 5 MILLIGRAM
     Route: 048
     Dates: start: 20110517
  60. AMBIEN CR [Concomitant]
     Dosage: 12.5 MILLIGRAM
     Route: 048
  61. DILAUDID [Concomitant]
     Route: 065
  62. FUROSEMIDE [Concomitant]
     Dosage: 20 MILLIGRAM
     Route: 041
     Dates: start: 20110607, end: 20110607
  63. SYNTHROID [Concomitant]
     Dosage: 50 MICROGRAM
     Route: 048
  64. VITAMIN D [Concomitant]
     Dosage: 50000 UNITS
     Route: 048
  65. VANCOMYCIN HYCHLORIDE [Concomitant]
     Dosage: 750 MILLIGRAM
     Route: 041
     Dates: start: 20110601, end: 20110610
  66. METOPROLOL TARTRATE [Concomitant]
     Dosage: 5 MILLIGRAM
     Route: 041
     Dates: start: 20110610, end: 20110610
  67. SANTYL [Concomitant]
     Dosage: 1 APPLICATION
     Route: 061
     Dates: start: 20110609, end: 20110611
  68. MAGNESIUM SULFATE [Concomitant]
     Dosage: 2 GRAM
     Dates: start: 20110526, end: 20110526
  69. MAGNESIUM SULFATE [Concomitant]
     Dosage: 4 GRAM
     Dates: start: 20110529, end: 20110529

REACTIONS (2)
  - DEHYDRATION [None]
  - DEATH [None]
